FAERS Safety Report 19000315 (Version 1)
Quarter: 2021Q1

REPORT INFORMATION
  Report Type: Spontaneous
  Country: IT (occurrence: IT)
  Receive Date: 20210312
  Receipt Date: 20210312
  Transmission Date: 20210420
  Serious: Yes (Other)
  Sender: FDA-Public Use
  Company Number: IT-TEVA-2021-IT-1890601

PATIENT
  Age: 6 Decade
  Sex: Female

DRUGS (6)
  1. METHOTREXATE. [Concomitant]
     Active Substance: METHOTREXATE
     Indication: DERMATOMYOSITIS
     Dosage: UP TO 20MG/WEEK
     Route: 065
  2. HYDROXYCHLOROQUINE [Concomitant]
     Active Substance: HYDROXYCHLOROQUINE
     Indication: DERMATOMYOSITIS
     Route: 065
  3. CICLOSPORIN [Concomitant]
     Active Substance: CYCLOSPORINE
     Indication: DERMATOMYOSITIS
     Route: 065
  4. AZATHIOPRINE. [Concomitant]
     Active Substance: AZATHIOPRINE
     Indication: DERMATOMYOSITIS
     Dosage: 2 MG/KG
     Route: 065
  5. PREDNISONE. [Suspect]
     Active Substance: PREDNISONE
     Indication: DERMATOMYOSITIS
     Dosage: 50 MILLIGRAM DAILY;
     Route: 065
  6. IMMUNOGLOBULIN [Concomitant]
     Indication: DERMATOMYOSITIS
     Dosage: 0.4 G/KG/DAY ON FIVE CONSECUTIVE DAYS; FIVE MONTHLY CYCLES
     Route: 065

REACTIONS (4)
  - Diabetes mellitus [Unknown]
  - Infection [Unknown]
  - Gastritis [Unknown]
  - Osteoporotic fracture [Unknown]
